FAERS Safety Report 9042346 (Version 1)
Quarter: 2013Q1

REPORT INFORMATION
  Report Type: Report from Study
  Country: US (occurrence: US)
  Receive Date: 20130129
  Receipt Date: 20130129
  Transmission Date: 20140127
  Serious: No
  Sender: FDA-Public Use
  Company Number: US-ABBOTT-12P-163-0908338-00

PATIENT
  Sex: Female
  Weight: 68.1 kg

DRUGS (14)
  1. HUMIRA 40 MG/0.8 ML PEN [Suspect]
     Indication: RHEUMATOID ARTHRITIS
  2. METHOTREXATE [Suspect]
     Indication: RHEUMATOID ARTHRITIS
  3. FUROSEMIDE [Suspect]
     Indication: OEDEMA PERIPHERAL
     Dates: start: 2011
  4. FUROSEMIDE [Suspect]
     Indication: OEDEMA PERIPHERAL
  5. THYROID MEDICATION [Concomitant]
     Indication: HYPOTHYROIDISM
  6. FOLIC ACID [Concomitant]
     Indication: VITAMIN SUPPLEMENTATION
  7. CRANBERRY PILLS [Concomitant]
     Indication: PROPHYLAXIS
     Dosage: PILLS
  8. RUTIN [Concomitant]
     Indication: PROPHYLAXIS
  9. NATTO K7 [Concomitant]
     Indication: OSTEOPOROSIS PROPHYLAXIS
  10. NATTO K7 [Concomitant]
     Indication: BLOOD PRESSURE MANAGEMENT
  11. KRILL OIL [Concomitant]
     Indication: DRUG THERAPY
  12. TRIAMTERENE [Concomitant]
     Indication: OEDEMA PERIPHERAL
  13. TRIAMTERENE [Concomitant]
     Indication: OEDEMA PERIPHERAL
  14. VITAMIN D [Concomitant]
     Indication: VITAMIN SUPPLEMENTATION

REACTIONS (6)
  - Oedema peripheral [Recovering/Resolving]
  - Joint swelling [Recovering/Resolving]
  - Weight decreased [Not Recovered/Not Resolved]
  - Paraesthesia [Recovered/Resolved]
  - Paraesthesia [Not Recovered/Not Resolved]
  - Paraesthesia [Not Recovered/Not Resolved]
